FAERS Safety Report 7150942-1 (Version None)
Quarter: 2010Q4

REPORT INFORMATION
  Report Type: 
  Country: None (occurrence: None)
  Receive Date: 20101210
  Receipt Date: 20101201
  Transmission Date: 20110411
  Serious: Yes (Hospitalization)
  Sender: FDA-Public Use
  Company Number: A0698895A

PATIENT
  Age: 50 Year
  Sex: Male
  Weight: 125 kg

DRUGS (1)
  1. AVANDIA [Suspect]
     Dosage: 4MG PER DAY
     Route: 048
     Dates: start: 20021110, end: 20070901

REACTIONS (4)
  - ACUTE CORONARY SYNDROME [None]
  - ANXIETY [None]
  - MYOCARDIAL INFARCTION [None]
  - PAIN [None]
